FAERS Safety Report 14653506 (Version 1)
Quarter: 2018Q1

REPORT INFORMATION
  Report Type: Spontaneous
  Country: US (occurrence: US)
  Receive Date: 20180315
  Receipt Date: 20180315
  Transmission Date: 20180509
  Serious: No
  Sender: FDA-Public Use
  Company Number: None

PATIENT
  Age: 36 Year
  Sex: Male
  Weight: 87.75 kg

DRUGS (1)
  1. CLENBUTEROL [Suspect]
     Active Substance: CLENBUTEROL
     Indication: WEIGHT DECREASED
     Route: 048
     Dates: start: 20180215, end: 20180217

REACTIONS (1)
  - Malaise [None]

NARRATIVE: CASE EVENT DATE: 20180215
